FAERS Safety Report 8219242-2 (Version None)
Quarter: 2012Q1

REPORT INFORMATION
  Report Type: 
  Country: None (occurrence: None)
  Receive Date: 20120319
  Receipt Date: 20120306
  Transmission Date: 20120608
  Serious: Yes (Hospitalization)
  Sender: FDA-Public Use
  Company Number: AE-ELI_LILLY_AND_COMPANY-AE201203002828

PATIENT
  Sex: Female

DRUGS (3)
  1. OLANZAPINE [Suspect]
     Dosage: 10 MG, QD
     Route: 065
  2. OLANZAPINE [Suspect]
     Dosage: 5 MG, QD
     Route: 065
  3. QUETIAPINE [Concomitant]
     Dosage: 200 MG, UNKNOWN
     Route: 065

REACTIONS (3)
  - GASTRIC DISORDER [None]
  - BRADYCARDIA [None]
  - HYPOTENSION [None]
